FAERS Safety Report 6610789-9 (Version None)
Quarter: 2010Q1

REPORT INFORMATION
  Report Type: 
  Country: None (occurrence: None)
  Receive Date: 20100302
  Receipt Date: 20100222
  Transmission Date: 20100710
  Serious: Yes (Death, Life-Threatening, Hospitalization, Other)
  Sender: FDA-Public Use
  Company Number: D0059983A

PATIENT
  Age: 84 Year
  Sex: Female
  Weight: 80 kg

DRUGS (4)
  1. ZOFRAN [Suspect]
     Dosage: 8MG PER DAY
     Route: 048
     Dates: start: 20080523, end: 20080528
  2. CORDAREX [Suspect]
     Dosage: 200MG PER DAY
     Route: 048
     Dates: start: 20080519, end: 20080528
  3. TAVOR [Suspect]
     Route: 048
     Dates: start: 20080522, end: 20080527
  4. UNSPECIFIED MEDICATION [Concomitant]
     Route: 065

REACTIONS (6)
  - GENERAL PHYSICAL HEALTH DETERIORATION [None]
  - HEPATITIS ACUTE [None]
  - MULTI-ORGAN FAILURE [None]
  - RENAL FAILURE [None]
  - SHOCK [None]
  - TRANSAMINASES INCREASED [None]
